FAERS Safety Report 20919597 (Version 1)
Quarter: 2022Q2

REPORT INFORMATION
  Report Type: Spontaneous
  Country: US (occurrence: US)
  Receive Date: 20220606
  Receipt Date: 20220606
  Transmission Date: 20220720
  Serious: No
  Sender: FDA-Public Use
  Company Number: US-BAYER-2022A079079

PATIENT
  Age: 97 Year
  Sex: Female

DRUGS (1)
  1. CLARITIN REDITABS [Suspect]
     Active Substance: LORATADINE
     Indication: Hypersensitivity
     Dosage: 1 DF, MORNING
     Route: 048
     Dates: start: 20220603

REACTIONS (2)
  - Productive cough [Unknown]
  - Productive cough [Unknown]

NARRATIVE: CASE EVENT DATE: 20220603
